FAERS Safety Report 18792912 (Version 7)
Quarter: 2023Q1

REPORT INFORMATION
  Report Type: Spontaneous
  Country: US (occurrence: US)
  Receive Date: 20210127
  Receipt Date: 20230201
  Transmission Date: 20230418
  Serious: Yes (Other)
  Sender: FDA-Public Use
  Company Number: US-PFIZER INC-2019250657

PATIENT
  Age: 36 Year
  Sex: Male

DRUGS (3)
  1. XYNTHA [Suspect]
     Active Substance: ANTIHEMOPHILIC FACTOR, HUMAN RECOMBINANT RESIDUES 743-1636 DELETED
     Indication: Haemarthrosis
     Dosage: AS NEEDED (4,000 =/- 10% UNITS PRN (AS NEEDED) EVERY 12 HOURS)
  2. XYNTHA [Suspect]
     Active Substance: ANTIHEMOPHILIC FACTOR, HUMAN RECOMBINANT RESIDUES 743-1636 DELETED
     Dosage: 3,000 +/-10% UNITS ON MONDAY, WEDNESDAY, AND FRIDAY
     Route: 042
     Dates: start: 20221014
  3. XYNTHA [Suspect]
     Active Substance: ANTIHEMOPHILIC FACTOR, HUMAN RECOMBINANT RESIDUES 743-1636 DELETED
     Dosage: 4,000 +/- 10% UNITS PRN EVERY 12 HOURS
     Route: 042
     Dates: start: 20221014

REACTIONS (1)
  - Haemorrhage [Unknown]
